FAERS Safety Report 21822849 (Version 1)
Quarter: 2023Q1

REPORT INFORMATION
  Report Type: Spontaneous
  Country: US (occurrence: US)
  Receive Date: 20230105
  Receipt Date: 20230105
  Transmission Date: 20230418
  Serious: Yes (Hospitalization)
  Sender: FDA-Public Use
  Company Number: US-TEVA-2022-US-2841370

PATIENT
  Age: 66 Year
  Sex: Male

DRUGS (1)
  1. PROPOFOL [Suspect]
     Active Substance: PROPOFOL
     Indication: Agitation
     Dosage: 17 MCG/KG/MIN
     Route: 065

REACTIONS (1)
  - Hypertriglyceridaemia [Recovering/Resolving]
